FAERS Safety Report 13239620 (Version 1)
Quarter: 2017Q1

REPORT INFORMATION
  Report Type: Spontaneous
  Country: US (occurrence: US)
  Receive Date: 20170216
  Receipt Date: 20170216
  Transmission Date: 20170428
  Serious: No
  Sender: FDA-Public Use
  Company Number: US-RELYPSA-RLY2016003403

PATIENT
  Sex: Male

DRUGS (1)
  1. VELTASSA [Suspect]
     Active Substance: PATIROMER
     Indication: HYPERKALAEMIA
     Dosage: 8.4 G, QD
     Route: 048
     Dates: start: 201610, end: 201610

REACTIONS (5)
  - Dizziness [Unknown]
  - Pain [Unknown]
  - Dysarthria [Unknown]
  - Chills [Unknown]
  - Influenza like illness [Unknown]

NARRATIVE: CASE EVENT DATE: 201610
